FAERS Safety Report 5780198-3 (Version None)
Quarter: 2008Q2

REPORT INFORMATION
  Report Type: 
  Country: None (occurrence: None)
  Receive Date: 20080620
  Receipt Date: 20080609
  Transmission Date: 20081010
  Serious: Yes (Hospitalization, Disabling)
  Sender: FDA-Public Use
  Company Number: GB-ROCHE-569017

PATIENT
  Age: 53 Year
  Sex: Male
  Weight: 89.3 kg

DRUGS (7)
  1. CAPECITABINE [Suspect]
     Route: 048
     Dates: start: 20080114, end: 20080120
  2. CISPLATIN [Suspect]
     Route: 042
     Dates: start: 20080114, end: 20080114
  3. DEXAMETHASONE TAB [Concomitant]
     Route: 048
     Dates: start: 20080114, end: 20080117
  4. DOMPERIDONE [Concomitant]
     Route: 048
     Dates: start: 20080114, end: 20080117
  5. EPIRUBICIN [Concomitant]
     Route: 042
     Dates: start: 20080114, end: 20080114
  6. GRANISETRON HCL [Concomitant]
     Route: 048
     Dates: start: 20080114, end: 20080114
  7. OMEPRAZOLE [Concomitant]
     Indication: DYSPEPSIA
     Route: 048

REACTIONS (3)
  - COMPARTMENT SYNDROME [None]
  - LIMB DISCOMFORT [None]
  - PERIPHERAL ISCHAEMIA [None]
